FAERS Safety Report 13957117 (Version 1)
Quarter: 2017Q3

REPORT INFORMATION
  Report Type: Spontaneous
  Country: US (occurrence: US)
  Receive Date: 20170911
  Receipt Date: 20170911
  Transmission Date: 20171128
  Serious: No
  Sender: FDA-Public Use
  Company Number: US-INCYTE CORPORATION-2017IN007433

PATIENT

DRUGS (1)
  1. JAKAFI [Suspect]
     Active Substance: RUXOLITINIB
     Indication: ANAEMIA OF CHRONIC DISEASE
     Dosage: 10 MG, QD
     Route: 048

REACTIONS (2)
  - Off label use [Unknown]
  - Blood disorder [Not Recovered/Not Resolved]
